FAERS Safety Report 15500567 (Version 1)
Quarter: 2018Q4

REPORT INFORMATION
  Report Type: Report from Study
  Country: CA (occurrence: CA)
  Receive Date: 20181015
  Receipt Date: 20181015
  Transmission Date: 20190205
  Serious: Yes (Hospitalization)
  Sender: FDA-Public Use
  Company Number: CA-JNJFOC-20181008958

PATIENT
  Age: 0 Year
  Weight: 2.43 kg

DRUGS (1)
  1. REMICADE [Suspect]
     Active Substance: INFLIXIMAB
     Indication: CROHN^S DISEASE
     Dosage: MOTHER^S DOSING
     Route: 064
     Dates: start: 20160617

REACTIONS (2)
  - Foetal exposure during pregnancy [Recovered/Resolved]
  - Low birth weight baby [Recovering/Resolving]

NARRATIVE: CASE EVENT DATE: 20180105
